FAERS Safety Report 10004576 (Version 2)
Quarter: 2014Q3

REPORT INFORMATION
  Report Type: Spontaneous
  Country: IT (occurrence: IT)
  Receive Date: 20140312
  Receipt Date: 20140710
  Transmission Date: 20150326
  Serious: Yes (Hospitalization)
  Sender: FDA-Public Use
  Company Number: IT-PFIZER INC-2014070763

PATIENT
  Age: 44 Year
  Sex: Female

DRUGS (6)
  1. HALCION [Suspect]
     Active Substance: TRIAZOLAM
     Dosage: 10 MG, SINGLE
     Route: 048
     Dates: start: 20140124, end: 20140124
  2. LAMICTAL [Concomitant]
     Active Substance: LAMOTRIGINE
     Dosage: UNK
  3. EFFEXOR [Concomitant]
     Active Substance: VENLAFAXINE HYDROCHLORIDE
     Dosage: UNK
  4. LITHIUM [Concomitant]
     Active Substance: LITHIUM CARBONATE
     Dosage: UNK
  5. SEROQUEL [Concomitant]
     Active Substance: QUETIAPINE FUMARATE
     Dosage: UNK
  6. ENTUMIN [Concomitant]
     Active Substance: CLOTHIAPINE
     Dosage: UNK

REACTIONS (2)
  - Intentional overdose [Recovered/Resolved]
  - Sopor [Recovered/Resolved]

NARRATIVE: CASE EVENT DATE: 20140124
